FAERS Safety Report 22518526 (Version 1)
Quarter: 2023Q2

REPORT INFORMATION
  Report Type: Other
  Country: GB (occurrence: GB)
  Receive Date: 20230605
  Receipt Date: 20230605
  Transmission Date: 20230721
  Serious: Yes (Other)
  Sender: FDA-Public Use
  Company Number: None

PATIENT
  Age: 46 Year
  Sex: Male
  Weight: 62 kg

DRUGS (1)
  1. PREDNISOLONE [Suspect]
     Active Substance: PREDNISOLONE
     Indication: Autoimmune disorder
     Dosage: 10 MG, QD, TABLET
     Route: 065
     Dates: start: 20220511, end: 20230211

REACTIONS (1)
  - Central serous chorioretinopathy [None]

NARRATIVE: CASE EVENT DATE: 20220517
